FAERS Safety Report 20531150 (Version 1)
Quarter: 2022Q1

REPORT INFORMATION
  Report Type: Spontaneous
  Country: US (occurrence: US)
  Receive Date: 20220301
  Receipt Date: 20220301
  Transmission Date: 20220424
  Serious: No
  Sender: FDA-Public Use
  Company Number: US-BIOVITRUM-2022US02956

PATIENT
  Age: 1 Year
  Sex: Male
  Weight: 11 kg

DRUGS (7)
  1. SYNAGIS [Suspect]
     Active Substance: PALIVIZUMAB
     Indication: Premature baby
     Route: 030
     Dates: start: 202011
  2. PEPCID [Concomitant]
     Active Substance: FAMOTIDINE
  3. SALINE SOLUTION SOLUTION [Concomitant]
  4. SYNAGIS [Suspect]
     Active Substance: PALIVIZUMAB
     Indication: Respiratory tract malformation
  5. ALBUTEROL SULFATE [Concomitant]
     Active Substance: ALBUTEROL SULFATE
  6. EPINEPHRINE [Concomitant]
     Active Substance: EPINEPHRINE
  7. SODIUM CHLORIDE 0.9 % CARTRIDGE [Concomitant]

REACTIONS (4)
  - Infection [Recovered/Resolved]
  - SARS-CoV-2 test positive [Recovered/Resolved]
  - Respiratory syncytial virus test positive [Recovered/Resolved]
  - Product dose omission issue [Recovered/Resolved]

NARRATIVE: CASE EVENT DATE: 20211130
